FAERS Safety Report 19310332 (Version 2)
Quarter: 2021Q2

REPORT INFORMATION
  Report Type: Report from Study
  Country: US (occurrence: US)
  Receive Date: 20210526
  Receipt Date: 20210607
  Transmission Date: 20210717
  Serious: Yes (Hospitalization, Other)
  Sender: FDA-Public Use
  Company Number: US-BAYER-2021-142466

PATIENT
  Age: 46 Year
  Sex: Female
  Weight: 63.49 kg

DRUGS (6)
  1. OPSUMIT [Concomitant]
     Active Substance: MACITENTAN
     Dosage: UNK
  2. ADEMPAS [Suspect]
     Active Substance: RIOCIGUAT
     Indication: PULMONARY ARTERIAL HYPERTENSION
     Dosage: UNK
     Route: 048
     Dates: start: 20210506
  3. ADEMPAS [Suspect]
     Active Substance: RIOCIGUAT
     Indication: PULMONARY ARTERIAL HYPERTENSION
     Dosage: 2 MG, TID
     Route: 048
  4. UPTRAVI [Concomitant]
     Active Substance: SELEXIPAG
     Dosage: UNK
  5. ADEMPAS [Suspect]
     Active Substance: RIOCIGUAT
     Indication: PULMONARY ARTERIAL HYPERTENSION
     Dosage: 1.5 MG, TID
     Route: 048
  6. ADEMPAS [Suspect]
     Active Substance: RIOCIGUAT
     Indication: PULMONARY ARTERIAL HYPERTENSION
     Dosage: 1.0 MG, TID
     Route: 048

REACTIONS (16)
  - Feeling abnormal [None]
  - Wrong technique in product usage process [None]
  - Loss of consciousness [None]
  - Headache [Not Recovered/Not Resolved]
  - Hyperhidrosis [None]
  - Fatigue [None]
  - Speech disorder [None]
  - Blood pressure decreased [None]
  - Somnolence [None]
  - Chest pain [None]
  - Apathy [None]
  - Dyspnoea [None]
  - Chest pain [None]
  - Withdrawal syndrome [None]
  - Heart rate increased [None]
  - Discomfort [None]

NARRATIVE: CASE EVENT DATE: 202105
